FAERS Safety Report 9433847 (Version 1)
Quarter: 2013Q3

REPORT INFORMATION
  Report Type: Spontaneous
  Country: US (occurrence: US)
  Receive Date: 20130731
  Receipt Date: 20130731
  Transmission Date: 20140515
  Serious: No
  Sender: FDA-Public Use
  Company Number: US-ASTRAZENECA-2013SE50171

PATIENT
  Sex: Male
  Weight: 79.4 kg

DRUGS (5)
  1. SEROQUEL XR [Suspect]
     Indication: MAJOR DEPRESSION
     Dosage: DAILY
     Route: 048
     Dates: start: 201212, end: 20130101
  2. SEROQUEL XR [Suspect]
     Indication: INSOMNIA
     Dosage: DAILY
     Route: 048
     Dates: start: 201212, end: 20130101
  3. SEROQUEL XR [Suspect]
     Indication: ANXIETY
     Dosage: DAILY
     Route: 048
     Dates: start: 201212, end: 20130101
  4. TRAZADONE [Concomitant]
     Indication: SLEEP DISORDER
     Dates: start: 20120601
  5. PAXIL [Concomitant]
     Indication: DEPRESSION
     Dates: start: 20120601

REACTIONS (3)
  - Insomnia [Unknown]
  - Irritability [Not Recovered/Not Resolved]
  - Intentional drug misuse [Unknown]
